FAERS Safety Report 17610518 (Version 5)
Quarter: 2021Q1

REPORT INFORMATION
  Report Type: Report from Study
  Country: US (occurrence: US)
  Receive Date: 20200401
  Receipt Date: 20210105
  Transmission Date: 20210419
  Serious: Yes (Life-Threatening, Other)
  Sender: FDA-Public Use
  Company Number: NVSC2020US089066

PATIENT
  Sex: Female

DRUGS (2)
  1. COSENTYX [Suspect]
     Active Substance: SECUKINUMAB
     Indication: PSORIATIC ARTHROPATHY
     Dosage: 300 MG, QMO (ONCE EVERY 4 WEEKS)
     Route: 058
  2. COSENTYX [Suspect]
     Active Substance: SECUKINUMAB
     Indication: PSORIASIS
     Dosage: 300 MG, QMO (INJECT 2 PENS (300 MG ) SUBCUTANEOUSLY ONCE EVERY 4 WEEKS IN THE ABDOMEN, THIGH, OR OUT
     Route: 058

REACTIONS (10)
  - Gastrointestinal polyp [Unknown]
  - Sinusitis [Unknown]
  - Near death experience [Unknown]
  - Abdominal pain [Unknown]
  - Underdose [Unknown]
  - Intestinal perforation [Unknown]
  - Gastrointestinal disorder [Unknown]
  - Gastrointestinal tract irritation [Unknown]
  - Product dose omission issue [Unknown]
  - Gastritis [Unknown]
